FAERS Safety Report 10458151 (Version 3)
Quarter: 2014Q4

REPORT INFORMATION
  Report Type: Report from Study
  Country: US (occurrence: US)
  Receive Date: 20140917
  Receipt Date: 20141022
  Transmission Date: 20150528
  Serious: Yes (Other)
  Sender: FDA-Public Use
  Company Number: US-BEH-2014045051

PATIENT
  Age: 23 Year
  Sex: Female

DRUGS (4)
  1. CYTOGAM [Suspect]
     Active Substance: HUMAN CYTOMEGALOVIRUS IMMUNE GLOBULIN
     Indication: CYTOMEGALOVIRUS INFECTION
     Route: 042
     Dates: start: 20140612, end: 20140612
  2. CYTOGAM [Suspect]
     Active Substance: HUMAN CYTOMEGALOVIRUS IMMUNE GLOBULIN
     Route: 042
     Dates: start: 20140814, end: 20140814
  3. ALBUMINAR-5 [Suspect]
     Active Substance: ALBUMIN (HUMAN)
     Indication: CYTOMEGALOVIRUS INFECTION
  4. CYTOGAM [Suspect]
     Active Substance: HUMAN CYTOMEGALOVIRUS IMMUNE GLOBULIN
     Route: 042
     Dates: start: 20140717, end: 20140717

REACTIONS (2)
  - Exposure during pregnancy [Recovered/Resolved]
  - Premature delivery [Recovered/Resolved]

NARRATIVE: CASE EVENT DATE: 20140612
